FAERS Safety Report 15118697 (Version 1)
Quarter: 2018Q3

REPORT INFORMATION
  Report Type: Spontaneous
  Country: US (occurrence: US)
  Receive Date: 20180709
  Receipt Date: 20180709
  Transmission Date: 20181010
  Serious: Yes (Hospitalization)
  Sender: FDA-Public Use
  Company Number: US-VIVIMED-2018SP005425

PATIENT

DRUGS (1)
  1. ZOLPIDEM [Suspect]
     Active Substance: ZOLPIDEM\ZOLPIDEM TARTRATE
     Indication: INSOMNIA
     Dosage: UNK
     Route: 065

REACTIONS (4)
  - Intentional self-injury [Recovered/Resolved]
  - Somnambulism [Unknown]
  - Parasomnia [Unknown]
  - Sleep-related eating disorder [Unknown]
